FAERS Safety Report 4936746-6 (Version None)
Quarter: 2006Q1

REPORT INFORMATION
  Report Type: 
  Country: None (occurrence: None)
  Receive Date: 20060302
  Receipt Date: 20060217
  Transmission Date: 20060701
  Serious: Yes (Other)
  Sender: FDA-Public Use
  Company Number: 2006018383

PATIENT
  Age: 30 Year
  Sex: Female

DRUGS (5)
  1. ZITHROMAC (AZITHROMYCIN) [Suspect]
     Indication: INFLUENZA
     Dosage: 500 MG, ORAL
     Route: 048
     Dates: start: 20060128, end: 20060101
  2. ZITHROMAC (AZITHROMYCIN) [Suspect]
     Indication: NASOPHARYNGITIS
     Dosage: 500 MG, ORAL
     Route: 048
     Dates: start: 20060128, end: 20060101
  3. TAMIFLU [Concomitant]
  4. TRANSAMIN (TRANEXAMIC ACID) [Concomitant]
  5. CALONAL (PARACETAMOL) [Concomitant]

REACTIONS (1)
  - ENTEROCOLITIS HAEMORRHAGIC [None]
